FAERS Safety Report 5646742-1 (Version None)
Quarter: 2008Q1

REPORT INFORMATION
  Report Type: 
  Country: None (occurrence: None)
  Receive Date: 20080229
  Receipt Date: 20080229
  Transmission Date: 20080703
  Serious: Yes (Other)
  Sender: FDA-Public Use
  Company Number: None

PATIENT
  Age: 53 Year
  Sex: Male
  Weight: 68.0396 kg

DRUGS (1)
  1. LOTREL [Suspect]
     Indication: HYPERTENSION
     Dosage: 5/10 MG PO QD
     Route: 048

REACTIONS (3)
  - DIZZINESS [None]
  - FLUSHING [None]
  - PHARMACEUTICAL PRODUCT COMPLAINT [None]
